FAERS Safety Report 17980865 (Version 1)
Quarter: 2020Q3

REPORT INFORMATION
  Report Type: Spontaneous
  Country: DE (occurrence: DE)
  Receive Date: 20200704
  Receipt Date: 20200704
  Transmission Date: 20201103
  Serious: Yes (Hospitalization, Other)
  Sender: FDA-Public Use
  Company Number: DE-SUN PHARMACEUTICAL INDUSTRIES LTD-2020RR-252385

PATIENT
  Age: 60 Year
  Sex: Male

DRUGS (7)
  1. NUTRIFLEX LIPID PERI 1,875L [Concomitant]
     Indication: PRODUCT USED FOR UNKNOWN INDICATION
     Dosage: NK MG, 1?0?0?0, INJEKTIONS?/INFUSIONSLOSUNG ()
     Route: 042
  2. GEMCITABINE. [Suspect]
     Active Substance: GEMCITABINE
     Indication: PRODUCT USED FOR UNKNOWN INDICATION
     Dosage: 1000 MG, NACH SCHEMA ()
     Route: 065
  3. PANTOPRAZOL [Concomitant]
     Active Substance: PANTOPRAZOLE SODIUM
     Indication: PRODUCT USED FOR UNKNOWN INDICATION
     Dosage: 40 MG, 0?0?1?0 ()
     Route: 065
  4. LACTULOSE. [Concomitant]
     Active Substance: LACTULOSE
     Indication: PRODUCT USED FOR UNKNOWN INDICATION
     Dosage: 12 TROPFEN, 1?0?0?0 ()
     Route: 065
  5. MCP [Concomitant]
     Active Substance: METOCLOPRAMIDE HYDROCHLORIDE
     Indication: PRODUCT USED FOR UNKNOWN INDICATION
     Dosage: 10 MG, 1?1?1?0 ()
     Route: 065
  6. ONDANSETRON [Concomitant]
     Active Substance: ONDANSETRON
     Indication: PRODUCT USED FOR UNKNOWN INDICATION
     Dosage: 8 MG, 1?0?1?0 ()
     Route: 065
  7. CISPLATIN. [Suspect]
     Active Substance: CISPLATIN
     Indication: PRODUCT USED FOR UNKNOWN INDICATION
     Dosage: 50 MG, NACH SCHEMA ()
     Route: 065

REACTIONS (5)
  - Pyrexia [Unknown]
  - Fatigue [Unknown]
  - Sepsis [Unknown]
  - General physical health deterioration [Unknown]
  - Hyperhidrosis [Unknown]
